FAERS Safety Report 5664874-9 (Version None)
Quarter: 2008Q1

REPORT INFORMATION
  Report Type: 
  Country: None (occurrence: None)
  Receive Date: 20080314
  Receipt Date: 20080303
  Transmission Date: 20080703
  Serious: No
  Sender: FDA-Public Use
  Company Number: US-BAXTER-2008BH002090

PATIENT

DRUGS (2)
  1. HEPARIN SODIUM [Suspect]
     Indication: DRUG USE FOR UNKNOWN INDICATION
     Dosage: DOSE UNIT:UNKNOWN
     Route: 040
  2. HEPARIN SODIUM [Suspect]
     Dosage: DOSE UNIT:UNKNOWN
     Route: 040

REACTIONS (6)
  - DIZZINESS [None]
  - FEELING ABNORMAL [None]
  - HYPOAESTHESIA [None]
  - HYPOTENSION [None]
  - LIP SWELLING [None]
  - NAUSEA [None]
